FAERS Safety Report 11718094 (Version 2)
Quarter: 2015Q4

REPORT INFORMATION
  Report Type: Spontaneous
  Country: IT (occurrence: IT)
  Receive Date: 20151110
  Receipt Date: 20151121
  Transmission Date: 20160304
  Serious: Yes (Hospitalization)
  Sender: FDA-Public Use
  Company Number: IT-ROCHE-1658451

PATIENT
  Age: 84 Year
  Sex: Male

DRUGS (1)
  1. ZELBORAF [Suspect]
     Active Substance: VEMURAFENIB
     Indication: METASTATIC MALIGNANT MELANOMA
     Dosage: 240 MG -BLISTER PACK (AL/AL)^ 56 TABLETS
     Route: 048
     Dates: start: 20140801, end: 20151010

REACTIONS (1)
  - Intestinal infarction [Recovering/Resolving]

NARRATIVE: CASE EVENT DATE: 20151009
